FAERS Safety Report 4319125-4 (Version None)
Quarter: 2004Q1

REPORT INFORMATION
  Report Type: 
  Country: None (occurrence: None)
  Receive Date: 20040318
  Receipt Date: 20040309
  Transmission Date: 20041129
  Serious: Yes (Hospitalization, Disabling)
  Sender: FDA-Public Use
  Company Number: WAES 0403USA00845

PATIENT
  Sex: Female

DRUGS (3)
  1. FOSAMAX [Concomitant]
     Route: 048
  2. ZETIA [Suspect]
     Indication: BLOOD CHOLESTEROL INCREASED
     Route: 048
  3. TOPROL-XL [Concomitant]

REACTIONS (1)
  - RHABDOMYOLYSIS [None]
